FAERS Safety Report 15389440 (Version 2)
Quarter: 2018Q3

REPORT INFORMATION
  Report Type: Spontaneous
  Country: US (occurrence: US)
  Receive Date: 20180917
  Receipt Date: 20180926
  Transmission Date: 20181010
  Serious: No
  Sender: FDA-Public Use
  Company Number: US-ASTRAZENECA-2018SF17921

PATIENT
  Age: 21349 Day
  Sex: Female
  Weight: 72.6 kg

DRUGS (15)
  1. CLARINEX [Concomitant]
     Active Substance: DESLORATADINE
  2. PROZAC [Concomitant]
     Active Substance: FLUOXETINE HYDROCHLORIDE
  3. VITAMIN D3 [Concomitant]
     Active Substance: CHOLECALCIFEROL
  4. VITAMIN B12 [Concomitant]
     Active Substance: CYANOCOBALAMIN
  5. MAGNESIUM [Concomitant]
     Active Substance: MAGNESIUM
  6. ZOMIG [Suspect]
     Active Substance: ZOLMITRIPTAN
     Indication: MIGRAINE
     Dosage: 1.0DF AS REQUIRED
     Route: 045
     Dates: start: 2013
  7. ZOMIG [Suspect]
     Active Substance: ZOLMITRIPTAN
     Indication: MIGRAINE
     Dosage: 5.0MG UNKNOWN
     Route: 045
     Dates: start: 20180901
  8. KLONOPIN [Concomitant]
     Active Substance: CLONAZEPAM
  9. LITHIUM. [Concomitant]
     Active Substance: LITHIUM
  10. MUCINEX [Concomitant]
     Active Substance: GUAIFENESIN
  11. MULTIVITAMIN WITH IRON [Concomitant]
     Active Substance: IRON\VITAMINS
  12. PANTOPRAZOLE [Concomitant]
     Active Substance: PANTOPRAZOLE
  13. CALCIUM [Concomitant]
     Active Substance: CALCIUM
  14. MYRBETRIQ [Concomitant]
     Active Substance: MIRABEGRON
  15. GLUCOSAMINE [Concomitant]
     Active Substance: GLUCOSAMINE

REACTIONS (10)
  - Salivary hypersecretion [Unknown]
  - Dysgeusia [Not Recovered/Not Resolved]
  - Drug ineffective [Unknown]
  - Expired product administered [Recovered/Resolved]
  - Migraine [Unknown]
  - Product quality issue [Unknown]
  - Intentional product misuse [Recovered/Resolved]
  - Oral pain [Unknown]
  - Oral discomfort [Unknown]
  - Dysgeusia [Unknown]

NARRATIVE: CASE EVENT DATE: 20180901
